FAERS Safety Report 4613153-7 (Version None)
Quarter: 2005Q1

REPORT INFORMATION
  Report Type: 
  Country: None (occurrence: None)
  Receive Date: 20050316
  Receipt Date: 20050224
  Transmission Date: 20050727
  Serious: Yes (Death, Hospitalization, Other)
  Sender: FDA-Public Use
  Company Number: USA050289592

PATIENT
  Age: 85 Year
  Sex: Female

DRUGS (1)
  1. FORTEO [Suspect]
     Indication: OSTEOPOROSIS
     Dates: start: 20050101, end: 20050115

REACTIONS (10)
  - ASTHENIA [None]
  - CARDIAC ARREST [None]
  - CHOLELITHIASIS [None]
  - COMA [None]
  - COMMUNICATION DISORDER [None]
  - DIARRHOEA [None]
  - DYSPHASIA [None]
  - INFECTION [None]
  - PHARYNGOLARYNGEAL PAIN [None]
  - VOMITING [None]
